FAERS Safety Report 7206842-1 (Version None)
Quarter: 2011Q1

REPORT INFORMATION
  Report Type: 
  Country: None (occurrence: None)
  Receive Date: 20110103
  Receipt Date: 20101222
  Transmission Date: 20110831
  Serious: Yes (Hospitalization)
  Sender: FDA-Public Use
  Company Number: FR-SANOFI-AVENTIS-2010SA077248

PATIENT
  Age: 69 Year
  Sex: Female
  Weight: 55 kg

DRUGS (6)
  1. AVASTIN [Suspect]
     Route: 042
     Dates: start: 20100922, end: 20100922
  2. OXALIPLATIN [Suspect]
     Indication: RECTAL CANCER
     Route: 042
     Dates: start: 20100712, end: 20100712
  3. AVASTIN [Suspect]
     Indication: RECTAL CANCER
     Route: 042
     Dates: start: 20100726, end: 20100726
  4. FLUOROURACIL [Suspect]
     Route: 042
     Dates: start: 20100922, end: 20100922
  5. OXALIPLATIN [Suspect]
     Route: 042
     Dates: start: 20100922, end: 20100922
  6. FLUOROURACIL [Suspect]
     Indication: RECTAL CANCER
     Route: 042
     Dates: start: 20100712, end: 20100712

REACTIONS (3)
  - NEPHROTIC SYNDROME [None]
  - CARDIAC FAILURE [None]
  - GENERALISED OEDEMA [None]
